FAERS Safety Report 7009888-1 (Version None)
Quarter: 2010Q3

REPORT INFORMATION
  Report Type: 
  Country: None (occurrence: None)
  Receive Date: 20100923
  Receipt Date: 20100916
  Transmission Date: 20110219
  Serious: Yes (Other)
  Sender: FDA-Public Use
  Company Number: DE-ROCHE-728739

PATIENT
  Age: 58 Year
  Sex: Female

DRUGS (2)
  1. BONIVA [Suspect]
     Indication: OSTEOPOROSIS
     Dosage: APPLICATION ON 16 SEP 2010
     Route: 042
  2. MARCUMAR [Concomitant]
     Indication: THROMBOSIS

REACTIONS (2)
  - PARAESTHESIA [None]
  - VISUAL IMPAIRMENT [None]
